FAERS Safety Report 12927262 (Version 1)
Quarter: 2016Q4

REPORT INFORMATION
  Report Type: Spontaneous
  Country: US (occurrence: US)
  Receive Date: 20161109
  Receipt Date: 20161109
  Transmission Date: 20170207
  Serious: No
  Sender: FDA-Public Use
  Company Number: US-ALLERGAN-1659737US

PATIENT
  Sex: Female

DRUGS (1)
  1. INFED [Suspect]
     Active Substance: IRON DEXTRAN
     Indication: PRODUCT USED FOR UNKNOWN INDICATION
     Dosage: 1000 MG, UNK
     Route: 030

REACTIONS (4)
  - Contusion [Recovered/Resolved]
  - Erythema [Recovered/Resolved]
  - Injection site pain [Recovered/Resolved]
  - Infusion site extravasation [Recovered/Resolved]
